FAERS Safety Report 7389229-0 (Version None)
Quarter: 2011Q2

REPORT INFORMATION
  Report Type: 
  Country: None (occurrence: None)
  Receive Date: 20110401
  Receipt Date: 20110322
  Transmission Date: 20111010
  Serious: Yes (Hospitalization)
  Sender: FDA-Public Use
  Company Number: IT-BAYER-2011-025394

PATIENT
  Sex: Male

DRUGS (1)
  1. ASPIRINA CON VITAMINA C [Suspect]
     Indication: INFLUENZA
     Dosage: 640 MG, QD
     Route: 048
     Dates: start: 20110305, end: 20110305

REACTIONS (2)
  - ERYTHEMA [None]
  - FACE OEDEMA [None]
